FAERS Safety Report 10684839 (Version 2)
Quarter: 2015Q2

REPORT INFORMATION
  Report Type: Spontaneous
  Country: SE (occurrence: SE)
  Receive Date: 20141231
  Receipt Date: 20150402
  Transmission Date: 20150821
  Serious: Yes (Other)
  Sender: FDA-Public Use
  Company Number: SE-ASTRAZENECA-2014SE98821

PATIENT
  Age: 26319 Day
  Sex: Female

DRUGS (1)
  1. METOPROLOL TARTRATE. [Suspect]
     Active Substance: METOPROLOL TARTRATE
     Route: 048
     Dates: end: 20140910

REACTIONS (3)
  - Cerebrovascular accident [Unknown]
  - Arrhythmia [Unknown]
  - Syncope [Unknown]

NARRATIVE: CASE EVENT DATE: 20140313
